FAERS Safety Report 12542084 (Version 5)
Quarter: 2016Q4

REPORT INFORMATION
  Report Type: Spontaneous
  Country: FR (occurrence: FR)
  Receive Date: 20160708
  Receipt Date: 20161212
  Transmission Date: 20170207
  Serious: Yes (Hospitalization)
  Sender: FDA-Public Use
  Company Number: PHHY2016FR093925

PATIENT
  Age: 26 Year
  Sex: Female

DRUGS (3)
  1. GILENYA [Suspect]
     Active Substance: FINGOLIMOD HYDROCHLORIDE
     Indication: MULTIPLE SCLEROSIS
     Dosage: 0.5 MG, QD
     Route: 048
     Dates: start: 201309, end: 201602
  2. AVLOCARDYL [Concomitant]
     Active Substance: PROPRANOLOL HYDROCHLORIDE
     Indication: TREMOR
     Dosage: 40 MG, PRN
     Route: 065
  3. ZOLOFT [Concomitant]
     Active Substance: SERTRALINE HYDROCHLORIDE
     Indication: PRODUCT USED FOR UNKNOWN INDICATION
     Dosage: 50 MG, UNK
     Route: 065

REACTIONS (16)
  - Multiple sclerosis relapse [Recovered/Resolved]
  - Hypoaesthesia [Unknown]
  - Genital disorder female [Unknown]
  - Vision blurred [Unknown]
  - Central nervous system lesion [Recovering/Resolving]
  - Rebound effect [Recovered/Resolved]
  - Headache [Unknown]
  - Blindness [Unknown]
  - Motor dysfunction [Recovering/Resolving]
  - Paraesthesia [Unknown]
  - Hemianopia homonymous [Recovering/Resolving]
  - Paresis [Unknown]
  - Urinary incontinence [Unknown]
  - Constipation [Unknown]
  - Vomiting [Unknown]
  - Insomnia [Unknown]

NARRATIVE: CASE EVENT DATE: 201604
